FAERS Safety Report 4617976-X (Version None)
Quarter: 2005Q1

REPORT INFORMATION
  Report Type: 
  Country: None (occurrence: None)
  Receive Date: 20050322
  Receipt Date: 20050308
  Transmission Date: 20050727
  Serious: Yes (Hospitalization)
  Sender: FDA-Public Use
  Company Number: 2005AP01576

PATIENT
  Age: 68 Year
  Sex: Male

DRUGS (5)
  1. LISINOPRIL [Suspect]
     Dosage: 20 MG DAILY PO
     Route: 048
     Dates: end: 20031029
  2. AMLODIPINE [Suspect]
     Dosage: 10 MG DAILY PO
     Route: 048
     Dates: end: 20031103
  3. CONTRAST MEDIUM [Suspect]
     Dosage: 1 UNK ONCE
     Dates: start: 20031027
  4. DIAFORMIN [Suspect]
     Dosage: 2.5 G DAILY PO
     Route: 048
     Dates: end: 20031029
  5. VIOXX [Suspect]
     Dosage: 25 MG DAILY
     Dates: end: 20031029

REACTIONS (4)
  - BLOOD POTASSIUM DECREASED [None]
  - HAEMODIALYSIS [None]
  - LACTIC ACIDOSIS [None]
  - RENAL FAILURE [None]
